FAERS Safety Report 6897823-6 (Version None)
Quarter: 2010Q3

REPORT INFORMATION
  Report Type: 
  Country: None (occurrence: None)
  Receive Date: 20100802
  Receipt Date: 20070720
  Transmission Date: 20110219
  Serious: No
  Sender: FDA-Public Use
  Company Number: US-PFIZER INC-2007060776

PATIENT
  Sex: Female
  Weight: 92.7 kg

DRUGS (6)
  1. LYRICA [Suspect]
     Indication: FIBROMYALGIA
     Dates: start: 20070301, end: 20070501
  2. LYRICA [Suspect]
     Indication: MULTIPLE SCLEROSIS
  3. PROVIGIL [Concomitant]
  4. CYMBALTA [Concomitant]
  5. ZOLPIDEM TARTRATE [Concomitant]
  6. DRUG, UNSPECIFIED [Concomitant]

REACTIONS (2)
  - INCREASED APPETITE [None]
  - WEIGHT INCREASED [None]
